FAERS Safety Report 6274919-3 (Version None)
Quarter: 2009Q3

REPORT INFORMATION
  Report Type: 
  Country: None (occurrence: None)
  Receive Date: 20090721
  Receipt Date: 20070724
  Transmission Date: 20100115
  Serious: Yes (Hospitalization, Other)
  Sender: FDA-Public Use
  Company Number: US-ASTRAZENECA-2007UW09601

PATIENT
  Age: 49 Year
  Sex: Female
  Weight: 86.9 kg

DRUGS (30)
  1. SEROQUEL [Suspect]
     Indication: BIPOLAR DISORDER
     Dosage: 100-400 MG
     Route: 048
     Dates: start: 20000101, end: 20060731
  2. SEROQUEL [Suspect]
     Indication: DEPRESSION
     Dosage: 100-400 MG
     Route: 048
     Dates: start: 20000101, end: 20060731
  3. SEROQUEL [Suspect]
     Indication: SLEEP DISORDER
     Dosage: 100-400 MG
     Route: 048
     Dates: start: 20000101, end: 20060731
  4. SEROQUEL [Suspect]
     Dosage: 100 - 400 MG
     Route: 048
     Dates: start: 20030303
  5. SEROQUEL [Suspect]
     Dosage: 100 - 400 MG
     Route: 048
     Dates: start: 20030303
  6. SEROQUEL [Suspect]
     Dosage: 100 - 400 MG
     Route: 048
     Dates: start: 20030303
  7. SEROQUEL [Suspect]
     Route: 048
  8. SEROQUEL [Suspect]
     Route: 048
  9. SEROQUEL [Suspect]
     Route: 048
  10. RISPERDAL [Concomitant]
     Indication: BIPOLAR DISORDER
  11. RISPERDAL [Concomitant]
     Indication: DEPRESSION
  12. TRAZODONE [Concomitant]
  13. GEMFIBROZIL [Concomitant]
  14. REMERON [Concomitant]
  15. DEPAKENE [Concomitant]
  16. WELLBUTRIN [Concomitant]
  17. LISINOPRIL [Concomitant]
  18. ALBUTEROL [Concomitant]
  19. LANTUS [Concomitant]
  20. NOVOLOG [Concomitant]
  21. APIDRA [Concomitant]
  22. KLONOPIN [Concomitant]
  23. LASIX [Concomitant]
  24. COLACE [Concomitant]
  25. RANITIDINE [Concomitant]
  26. NEURONTIN [Concomitant]
  27. SPIRIVA [Concomitant]
  28. COMBIVENT [Concomitant]
  29. PREMARIN [Concomitant]
  30. ZELNORM [Concomitant]

REACTIONS (5)
  - DIABETES MELLITUS [None]
  - NEUROPATHY PERIPHERAL [None]
  - PANCREATITIS ACUTE [None]
  - PANCREATITIS CHRONIC [None]
  - TYPE 2 DIABETES MELLITUS [None]
